FAERS Safety Report 8140006-2 (Version None)
Quarter: 2012Q1

REPORT INFORMATION
  Report Type: 
  Country: None (occurrence: None)
  Receive Date: 20120215
  Receipt Date: 20120206
  Transmission Date: 20120608
  Serious: Yes (Other)
  Sender: FDA-Public Use
  Company Number: US-ASTRAZENECA-2012SE08255

PATIENT
  Age: 91 Year
  Sex: Male

DRUGS (7)
  1. METOCLOPRAMIDE [Concomitant]
  2. TRAVATAN [Concomitant]
  3. SYNTHROID [Concomitant]
  4. CRESTOR [Suspect]
     Route: 048
  5. FLOMAX [Concomitant]
  6. PLAVIX [Concomitant]
  7. AMLODIPINE [Suspect]

REACTIONS (1)
  - MALIGNANT MELANOMA [None]
